FAERS Safety Report 19304647 (Version 1)
Quarter: 2021Q2

REPORT INFORMATION
  Report Type: Report from Study
  Country: US (occurrence: US)
  Receive Date: 20210526
  Receipt Date: 20210526
  Transmission Date: 20210717
  Serious: Yes (Death)
  Sender: FDA-Public Use
  Company Number: US-TAIHO ONCOLOGY  INC-EU-2021-01574

PATIENT
  Age: 73 Year
  Sex: Male

DRUGS (9)
  1. LONSURF [Suspect]
     Active Substance: TIPIRACIL HYDROCHLORIDE\TRIFLURIDINE
     Indication: COLON CANCER
     Dosage: CYCLE UNKNOWN
     Route: 048
     Dates: start: 20201020, end: 20210513
  2. LEVETIRACETAM. [Concomitant]
     Active Substance: LEVETIRACETAM
  3. FENTANYL. [Concomitant]
     Active Substance: FENTANYL
  4. FAMOTIDINE. [Concomitant]
     Active Substance: FAMOTIDINE
  5. METOPROLOL. [Concomitant]
     Active Substance: METOPROLOL
  6. ELIQUIS [Concomitant]
     Active Substance: APIXABAN
  7. LANTUS SOLOS [Concomitant]
  8. AMLOD/BENAZP [Concomitant]
  9. SPIRONOLACTONE. [Concomitant]
     Active Substance: SPIRONOLACTONE

REACTIONS (1)
  - Death [Fatal]

NARRATIVE: CASE EVENT DATE: 20210513
